FAERS Safety Report 19323641 (Version 3)
Quarter: 2022Q3

REPORT INFORMATION
  Report Type: Report from Study
  Country: ZA (occurrence: ZA)
  Receive Date: 20210528
  Receipt Date: 20220823
  Transmission Date: 20221027
  Serious: Yes (Death, Hospitalization)
  Sender: FDA-Public Use
  Company Number: ZA-NOVOPROD-814343

PATIENT
  Age: 66 Year
  Sex: Female

DRUGS (6)
  1. HYDROCHLOROTHIAZIDE\LOSARTAN POTASSIUM [Concomitant]
     Active Substance: HYDROCHLOROTHIAZIDE\LOSARTAN POTASSIUM
     Indication: Hypertension
     Dosage: 50/ 12.5 MG
     Dates: end: 202105
  2. SIMVASTATIN [Concomitant]
     Active Substance: SIMVASTATIN
     Indication: Blood cholesterol abnormal
     Dosage: 10 MG
     Route: 048
     Dates: end: 202105
  3. METFORMIN HYDROCHLORIDE [Concomitant]
     Active Substance: METFORMIN HYDROCHLORIDE
     Indication: Diabetes mellitus
     Dosage: 1,000.00 MG
     Dates: end: 202105
  4. GLYCOMIN [GLIBENCLAMIDE] [Concomitant]
     Indication: Diabetes mellitus
     Dosage: 5 MG
     Route: 048
     Dates: end: 202105
  5. TREVIGO [Concomitant]
     Indication: Vertigo
     Dosage: 24.00 MG
     Route: 048
  6. ESTRADIOL HEMIHYDRATE [Suspect]
     Active Substance: ESTRADIOL HEMIHYDRATE
     Indication: Hormone replacement therapy
     Dosage: 2 MG
     Route: 048
     Dates: end: 202105

REACTIONS (1)
  - Neoplasm malignant [Fatal]
